FAERS Safety Report 4291615-2 (Version None)
Quarter: 2004Q1

REPORT INFORMATION
  Report Type: 
  Country: None (occurrence: None)
  Receive Date: 20040211
  Receipt Date: 20031022
  Transmission Date: 20041129
  Serious: No
  Sender: FDA-Public Use
  Company Number: US-GLAXOSMITHKLINE-A0431212A

PATIENT
  Sex: Male

DRUGS (1)
  1. IMITREX [Suspect]
     Route: 042

REACTIONS (1)
  - INJECTION SITE PAIN [None]
